FAERS Safety Report 7298775-X (Version None)
Quarter: 2011Q1

REPORT INFORMATION
  Report Type: 
  Country: None (occurrence: None)
  Receive Date: 20110209
  Receipt Date: 20110124
  Transmission Date: 20110831
  Serious: Yes (Death, Hospitalization, Congenital Anomaly)
  Sender: FDA-Public Use
  Company Number: 2011MA000626

PATIENT
  Age: 41 Year
  Sex: Male
  Weight: 3.6 kg

DRUGS (1)
  1. PHENYTOIN [Suspect]
     Indication: DRUG EXPOSURE DURING PREGNANCY
     Dosage: PO
     Route: 048

REACTIONS (20)
  - NEONATAL ASPHYXIA [None]
  - MATERNAL DRUGS AFFECTING FOETUS [None]
  - HIRSUTISM [None]
  - PHALANGEAL HYPOPLASIA [None]
  - ABNORMAL PALMAR/PLANTAR CREASES [None]
  - HYPOSPADIAS [None]
  - CONGENITAL HAIR DISORDER [None]
  - NIPPLE DISORDER [None]
  - CRYPTORCHISM [None]
  - HYPERTELORISM OF ORBIT [None]
  - NEONATAL RESPIRATORY DISTRESS SYNDROME [None]
  - SKIN DISORDER [None]
  - NECK DEFORMITY [None]
  - NAIL DISORDER [None]
  - SKIN FISSURES [None]
  - LIP DISORDER [None]
  - CLEFT PALATE [None]
  - NASAL DISORDER [None]
  - SINGLE UMBILICAL ARTERY [None]
  - FOETAL ANTICONVULSANT SYNDROME [None]
